FAERS Safety Report 22536018 (Version 1)
Quarter: 2023Q2

REPORT INFORMATION
  Report Type: Spontaneous
  Country: US (occurrence: US)
  Receive Date: 20230608
  Receipt Date: 20230608
  Transmission Date: 20230721
  Serious: No
  Sender: FDA-Public Use
  Company Number: US-009507513-2305USA005031

PATIENT
  Sex: Male

DRUGS (2)
  1. BELSOMRA [Suspect]
     Active Substance: SUVOREXANT
     Indication: Poor quality sleep
     Dosage: 20 MILLIGRAM, QD
     Route: 048
     Dates: start: 202303
  2. BELSOMRA [Suspect]
     Active Substance: SUVOREXANT
     Indication: Sleep disorder

REACTIONS (2)
  - Drug ineffective [Not Recovered/Not Resolved]
  - Therapeutic product effect variable [Not Recovered/Not Resolved]

NARRATIVE: CASE EVENT DATE: 20230101
